FAERS Safety Report 8391711-4 (Version None)
Quarter: 2012Q1

REPORT INFORMATION
  Report Type: 
  Country: None (occurrence: None)
  Receive Date: 20120323
  Receipt Date: 20110408
  Transmission Date: 20120608
  Serious: Yes (Hospitalization)
  Sender: FDA-Public Use
  Company Number: 163-21880-11031122

PATIENT
  Sex: Male

DRUGS (21)
  1. DOXYCYCLINE [Concomitant]
  2. MULTIVITAMIN [Concomitant]
  3. GLYBURIDE [Concomitant]
  4. ALLOPURINOL [Concomitant]
  5. REVLIMID [Suspect]
     Indication: MULTIPLE MYELOMA
     Dosage: 25 MG, 1 IN 1 D, PO
     Route: 048
     Dates: start: 20090612
  6. LASIX [Concomitant]
  7. IMDUR [Concomitant]
  8. FISH OIL (FISH OIL) [Concomitant]
  9. ASPIRIN [Concomitant]
  10. NOVOLOG [Concomitant]
  11. DECADRON [Concomitant]
  12. COREG [Concomitant]
  13. DEXAMETHASONE [Concomitant]
  14. FOLIC ACID [Concomitant]
  15. LIPITOR [Concomitant]
  16. LANTUS [Concomitant]
  17. LORTAB [Concomitant]
  18. LYRICA [Concomitant]
  19. PROCRIT [Concomitant]
  20. PEPCID [Concomitant]
  21. MAGNESIUM OXIDE (MAGNESIUM OXIDE) [Concomitant]

REACTIONS (1)
  - OSTEOMYELITIS BACTERIAL [None]
